FAERS Safety Report 6232011-8 (Version None)
Quarter: 2009Q2

REPORT INFORMATION
  Report Type: 
  Country: None (occurrence: None)
  Receive Date: 20090612
  Receipt Date: 20090603
  Transmission Date: 20091009
  Serious: Yes (Hospitalization)
  Sender: FDA-Public Use
  Company Number: JP-WYE-H08808909

PATIENT
  Age: 68 Year
  Sex: Male

DRUGS (6)
  1. ZOSYN [Suspect]
     Dosage: 4.5 G 4X PER 1 DAY INTRAVENOUS DRIP
     Route: 041
     Dates: start: 20090116, end: 20090220
  2. VANCOMYCIN [Concomitant]
  3. SLOW-K [Concomitant]
  4. GASMOTIN (MOSAPRIDE CITRATE) [Concomitant]
  5. IODOFORM (IODOFORM) [Concomitant]
  6. CADEXOMER IODINE (CADEXOMER IODINE) [Concomitant]

REACTIONS (5)
  - APHASIA [None]
  - DELIRIUM [None]
  - HYPOPHAGIA [None]
  - INSOMNIA [None]
  - LACK OF SPONTANEOUS SPEECH [None]
